FAERS Safety Report 24557498 (Version 2)
Quarter: 2025Q3

REPORT INFORMATION
  Report Type: Spontaneous
  Country: RS (occurrence: RS)
  Receive Date: 20241028
  Receipt Date: 20250829
  Transmission Date: 20251020
  Serious: Yes (Other)
  Sender: INCYTE
  Company Number: RS-002147023-NVSC2024RS205934

PATIENT
  Weight: 2.29 kg

DRUGS (1)
  1. RUXOLITINIB [Suspect]
     Active Substance: RUXOLITINIB
     Indication: Foetal exposure during pregnancy
     Dosage: (MATERNAL EXPOSURE DURING PREGNANCY + 20 MG, BID)

REACTIONS (3)
  - Low birth weight baby [Unknown]
  - Foetal exposure during pregnancy [Unknown]
  - Premature baby [Unknown]
